FAERS Safety Report 5918319-1 (Version None)
Quarter: 2008Q4

REPORT INFORMATION
  Report Type: 
  Country: None (occurrence: None)
  Receive Date: 20081010
  Receipt Date: 20080926
  Transmission Date: 20090506
  Serious: Yes (Hospitalization)
  Sender: FDA-Public Use
  Company Number: 238491J08USA

PATIENT
  Age: 61 Year
  Sex: Female
  Weight: 64 kg

DRUGS (4)
  1. REBIF [Suspect]
     Indication: MULTIPLE SCLEROSIS
     Dosage: 44 MCG, 3 IN 1 WEEKS, SUBCUTANEOUS
     Route: 058
     Dates: start: 20020708
  2. TEMAZEPAM(TEMASEPAM) [Concomitant]
  3. AMITRIPTYLINE HYDROCHLORIDE [Concomitant]
  4. SIMVASTATIN [Concomitant]

REACTIONS (5)
  - CYSTITIS [None]
  - GASTROINTESTINAL DISORDER [None]
  - MUSCULOSKELETAL DISORDER [None]
  - OEDEMA PERIPHERAL [None]
  - THROMBOSIS [None]
